FAERS Safety Report 25661976 (Version 1)
Quarter: 2025Q3

REPORT INFORMATION
  Report Type: Spontaneous
  Country: US (occurrence: US)
  Receive Date: 20250809
  Receipt Date: 20250809
  Transmission Date: 20251020
  Serious: Yes (Other)
  Sender: AMGEN
  Company Number: US-AMGEN-USASP2025155505

PATIENT
  Age: 35 Year
  Sex: Female
  Weight: 92.7 kg

DRUGS (24)
  1. TEPEZZA [Suspect]
     Active Substance: TEPROTUMUMAB-TRBW
     Indication: Endocrine ophthalmopathy
     Dosage: 10 MILLIGRAM/KILOGRAM, Q3WK
     Route: 040
     Dates: start: 20211015
  2. TEPEZZA [Suspect]
     Active Substance: TEPROTUMUMAB-TRBW
     Dosage: 20 MILLIGRAM/KILOGRAM, Q3WK
     Route: 040
     Dates: end: 20220318
  3. FLUZONE [Concomitant]
     Active Substance: INFLUENZA VIRUS VACCINE
     Dates: start: 20230919
  4. ASTELIN [Concomitant]
     Active Substance: AZELASTINE HYDROCHLORIDE
     Dates: start: 20221220
  5. PULMICORT TURBUHALER [Concomitant]
     Active Substance: BUDESONIDE
     Dates: start: 20221220
  6. WELLBUTRIN XL [Concomitant]
     Active Substance: BUPROPION HYDROCHLORIDE
     Dosage: 150 MILLIGRAM, QD
     Route: 048
  7. PERIDEX [Concomitant]
     Active Substance: CHLORHEXIDINE GLUCONATE
  8. FLEXERIL [Concomitant]
     Active Substance: CYCLOBENZAPRINE HYDROCHLORIDE
     Dates: start: 20220119
  9. DRISDOL [Concomitant]
     Active Substance: ERGOCALCIFEROL
     Dates: start: 20201217
  10. Romycin [Concomitant]
  11. SYNALAR [Concomitant]
     Active Substance: FLUOCINOLONE ACETONIDE
     Dates: start: 20210902
  12. NIZORAL [Concomitant]
     Active Substance: KETOCONAZOLE
     Dates: start: 20221208
  13. SINGULAIR [Concomitant]
     Active Substance: MONTELUKAST SODIUM
     Route: 048
     Dates: start: 20210902
  14. NAPROXEN [Concomitant]
     Active Substance: NAPROXEN
     Dates: start: 20220119
  15. MAXITROL [Concomitant]
     Active Substance: DEXAMETHASONE\NEOMYCIN SULFATE\POLYMYXIN B SULFATE
     Dates: start: 20230325
  16. MACROBID [Concomitant]
     Active Substance: NITROFURANTOIN\NITROFURANTOIN MONOHYDRATE
  17. PATADAY [Concomitant]
     Active Substance: OLOPATADINE HYDROCHLORIDE
     Dates: start: 20220325
  18. PERCOCET [Concomitant]
     Active Substance: ACETAMINOPHEN\OXYCODONE HYDROCHLORIDE
  19. PROTONIX [Concomitant]
     Active Substance: PANTOPRAZOLE SODIUM
     Dates: start: 20220203
  20. RETIN-A [Concomitant]
     Active Substance: TRETINOIN
     Dates: start: 20211202
  21. RETIN-A [Concomitant]
     Active Substance: TRETINOIN
     Dates: start: 20211206
  22. AMBIEN [Concomitant]
     Active Substance: ZOLPIDEM TARTRATE
     Dates: start: 20220131
  23. BIOTIN [Concomitant]
     Active Substance: BIOTIN
     Dates: start: 20230213, end: 20230213
  24. OMEGA 3 [Concomitant]
     Active Substance: CAPSAICIN
     Dosage: 1000 MILLIGRAM, QD
     Route: 048

REACTIONS (16)
  - Endocrine ophthalmopathy [Unknown]
  - Alopecia [Not Recovered/Not Resolved]
  - Heterogeneously dense breasts [Not Recovered/Not Resolved]
  - Metabolic syndrome [Not Recovered/Not Resolved]
  - Vitamin B12 deficiency [Not Recovered/Not Resolved]
  - Insomnia [Not Recovered/Not Resolved]
  - Abnormal weight gain [Not Recovered/Not Resolved]
  - Mammogram abnormal [Not Recovered/Not Resolved]
  - Obesity [Not Recovered/Not Resolved]
  - Headache [Unknown]
  - Acne [Unknown]
  - Thyroiditis [Unknown]
  - Hyperlipidaemia [Unknown]
  - Vitamin D decreased [Not Recovered/Not Resolved]
  - Pyrexia [Unknown]
  - Nasal polyps [Unknown]

NARRATIVE: CASE EVENT DATE: 20211228
